FAERS Safety Report 18382929 (Version 2)
Quarter: 2020Q4

REPORT INFORMATION
  Report Type: Spontaneous
  Country: CN (occurrence: CN)
  Receive Date: 20201014
  Receipt Date: 20201021
  Transmission Date: 20210114
  Serious: Yes (Other)
  Sender: FDA-Public Use
  Company Number: CN-TOPROL-202000035

PATIENT
  Age: 66 Year
  Sex: Female
  Weight: 62 kg

DRUGS (5)
  1. METOPROLOL SUCCINATE. [Suspect]
     Active Substance: METOPROLOL SUCCINATE
     Indication: CARDIAC DISORDER
     Dosage: 0.5 DOSAGE FORM FOR HYPERTENSION
     Route: 048
  2. SYMBICORT [Suspect]
     Active Substance: BUDESONIDE\FORMOTEROL FUMARATE DIHYDRATE
     Indication: PRODUCT USED FOR UNKNOWN INDICATION
     Route: 055
  3. METOPROLOL SUCCINATE. [Suspect]
     Active Substance: METOPROLOL SUCCINATE
     Indication: CARDIAC DISORDER
     Dosage: 1 DOSAGE FORM FOR HEART DISEASE
     Route: 048
  4. SYMBICORT [Suspect]
     Active Substance: BUDESONIDE\FORMOTEROL FUMARATE DIHYDRATE
     Indication: PRODUCT USED FOR UNKNOWN INDICATION
     Dosage: ONCE EVERY 2-3 DAYS
     Route: 055
  5. YIBODING [Suspect]
     Active Substance: VERAPAMIL HYDROCHLORIDE
     Indication: PRODUCT USED FOR UNKNOWN INDICATION
     Dosage: LESS THAN ONE TABLET IN TOTAL, MORE THAN 1/3 PER DAY

REACTIONS (11)
  - Cardiac arrest [Recovering/Resolving]
  - Cardiac discomfort [Recovering/Resolving]
  - Headache [Unknown]
  - Extrasystoles [Recovering/Resolving]
  - Therapy cessation [Unknown]
  - Myalgia [Recovered/Resolved]
  - Heart rate increased [Recovering/Resolving]
  - Petechiae [Recovering/Resolving]
  - Arthropathy [Unknown]
  - Dizziness [Recovering/Resolving]
  - Blood pressure fluctuation [Unknown]
